FAERS Safety Report 4549895-1 (Version None)
Quarter: 2004Q4

REPORT INFORMATION
  Report Type: 
  Country: None (occurrence: None)
  Receive Date: 20041228
  Receipt Date: 20040831
  Transmission Date: 20050328
  Serious: Yes (Hospitalization, Other)
  Sender: FDA-Public Use
  Company Number: WAES 0408USA00779

PATIENT
  Age: 64 Year
  Sex: Male
  Weight: 79.8331 kg

DRUGS (5)
  1. INVANZ [Suspect]
     Indication: CELLULITIS
     Dosage: 1 GM/DAILY/IV
     Route: 042
     Dates: start: 20040723, end: 20040726
  2. COZAAR [Concomitant]
  3. ATENOLOL [Concomitant]
  4. HYDROCHLOROTHIAZIDE [Concomitant]
  5. RANITIDINE [Concomitant]

REACTIONS (1)
  - HYPOTENSION [None]
